FAERS Safety Report 16363104 (Version 1)
Quarter: 2019Q2

REPORT INFORMATION
  Report Type: Spontaneous
  Country: GB (occurrence: GB)
  Receive Date: 20190528
  Receipt Date: 20190528
  Transmission Date: 20190711
  Serious: Yes (Other)
  Sender: FDA-Public Use
  Company Number: GB-MYLANLABS-2019M1048951

PATIENT
  Age: 6 Year
  Sex: Female

DRUGS (1)
  1. CLARITHROMYCIN. [Suspect]
     Active Substance: CLARITHROMYCIN
     Indication: SWELLING
     Dosage: 140 MILLIGRAM (20MG/ML)
     Route: 042
     Dates: start: 20180611

REACTIONS (2)
  - Administration site extravasation [Unknown]
  - Product preparation error [Unknown]

NARRATIVE: CASE EVENT DATE: 20180611
